FAERS Safety Report 10562077 (Version 1)
Quarter: 2014Q4

REPORT INFORMATION
  Report Type: Spontaneous
  Country: US (occurrence: US)
  Receive Date: 20141104
  Receipt Date: 20141104
  Transmission Date: 20150529
  Serious: Yes (Other)
  Sender: FDA-Public Use
  Company Number: US-BEH-2014045944

PATIENT
  Age: 81 Year
  Sex: Female
  Weight: 51 kg

DRUGS (32)
  1. SODIUM CHLORIDE. [Concomitant]
     Active Substance: SODIUM CHLORIDE
  2. LEVOTHYROXINE [Concomitant]
     Active Substance: LEVOTHYROXINE
  3. FLU SHOT [Concomitant]
     Active Substance: INFLUENZA VIRUS VACCINE
  4. OXYGEN. [Concomitant]
     Active Substance: OXYGEN
  5. ALBUTEROL. [Concomitant]
     Active Substance: ALBUTEROL
  6. ZEMAIRA [Suspect]
     Active Substance: .ALPHA.1-PROTEINASE INHIBITOR HUMAN
     Indication: ALPHA-1 ANTI-TRYPSIN DEFICIENCY
     Route: 042
     Dates: start: 20141021, end: 20141021
  7. LEVETIRACETAM. [Concomitant]
     Active Substance: LEVETIRACETAM
  8. TAGAMET [Concomitant]
     Active Substance: CIMETIDINE
  9. ALL OTHER THERAPEUTIC PRODUCTS [Concomitant]
     Active Substance: UNSPECIFIED INGREDIENT
  10. SIMVASTATIN. [Concomitant]
     Active Substance: SIMVASTATIN
  11. PRIMATENE [Concomitant]
     Active Substance: EPHEDRINE HYDROCHLORIDE\GUAIFENESIN
  12. MUCINEX D [Concomitant]
     Active Substance: GUAIFENESIN\PSEUDOEPHEDRINE HYDROCHLORIDE
  13. VITAMIN E [Concomitant]
     Active Substance: .ALPHA.-TOCOPHEROL
  14. CIMETIDINE [Concomitant]
     Active Substance: CIMETIDINE
  15. ADVAIR HFA [Concomitant]
     Active Substance: FLUTICASONE PROPIONATE\SALMETEROL XINAFOATE
  16. EPIPEN [Concomitant]
     Active Substance: EPINEPHRINE
  17. DIOVAN [Concomitant]
     Active Substance: VALSARTAN
  18. CALCIUM 500 + D [Concomitant]
     Active Substance: CALCIUM\VITAMIN D
  19. VITAMIN C [Concomitant]
     Active Substance: ASCORBIC ACID
  20. CENTRUM SILVER [Concomitant]
     Active Substance: VITAMINS
  21. ASPIRIN. [Concomitant]
     Active Substance: ASPIRIN
  22. IPRAT-ALBUT [Concomitant]
  23. GINKO BILOBA [Concomitant]
  24. ALEVE [Concomitant]
     Active Substance: NAPROXEN SODIUM
  25. SPIRIVA [Concomitant]
     Active Substance: TIOTROPIUM BROMIDE MONOHYDRATE
  26. GINKGO BILOBA [Concomitant]
     Active Substance: GINKGO
  27. DIPHENHYDRAMINE [Concomitant]
     Active Substance: DIPHENHYDRAMINE
  28. LMX [Concomitant]
     Active Substance: LIDOCAINE
  29. ALL OTHER NON-THERAPEUTIC PRODUCTS [Concomitant]
     Active Substance: UNSPECIFIED INGREDIENT
  30. DRAMAMINE [Concomitant]
     Active Substance: DIMENHYDRINATE
  31. CLARITIN [Concomitant]
     Active Substance: LORATADINE
  32. THEOPHYLLINE [Concomitant]
     Active Substance: THEOPHYLLINE ANHYDROUS

REACTIONS (3)
  - Eye movement disorder [Unknown]
  - Pulse abnormal [Unknown]
  - Blood pressure decreased [Unknown]

NARRATIVE: CASE EVENT DATE: 20141021
